FAERS Safety Report 6653037-6 (Version None)
Quarter: 2010Q1

REPORT INFORMATION
  Report Type: 
  Country: None (occurrence: None)
  Receive Date: 20100326
  Receipt Date: 20100316
  Transmission Date: 20100710
  Serious: Yes (Other)
  Sender: FDA-Public Use
  Company Number: PHHY2010JP06554

PATIENT
  Sex: Male
  Weight: 63 kg

DRUGS (8)
  1. ZOMETA [Suspect]
     Indication: METASTASES TO BONE
     Dosage: 4MG (PER ADMINISTRATION)
     Route: 041
     Dates: start: 20090807, end: 20100107
  2. CASODEX [Concomitant]
     Indication: PROSTATE CANCER
     Dosage: 80 MG, UNK
     Route: 048
     Dates: start: 20090805
  3. MAGMITT [Concomitant]
     Indication: CONSTIPATION
     Dosage: 1980 MG, UNK
     Route: 048
     Dates: start: 20090730
  4. ALOSENN [Concomitant]
     Indication: CONSTIPATION
     Dosage: 1.5 MG, UNK
     Route: 048
     Dates: start: 20090803
  5. LEUPLIN [Concomitant]
     Indication: PROSTATE CANCER
     Dosage: UNK
     Route: 058
     Dates: start: 20090818
  6. OPALMON [Concomitant]
     Indication: LUMBAR SPINAL STENOSIS
     Dosage: 15 UG, UNK
     Route: 048
  7. CELECOXIB [Concomitant]
     Indication: PAIN
     Dosage: 200 MG, UNK
     Route: 048
  8. APLACE [Concomitant]
     Indication: GASTRITIS
     Dosage: 200 MG, UNK
     Route: 048

REACTIONS (4)
  - GINGIVAL SWELLING [None]
  - OSTEOMYELITIS [None]
  - PURULENT DISCHARGE [None]
  - TOOTH EXTRACTION [None]
